FAERS Safety Report 5899228-3 (Version None)
Quarter: 2008Q3

REPORT INFORMATION
  Report Type: 
  Country: None (occurrence: None)
  Receive Date: 20080925
  Receipt Date: 20080909
  Transmission Date: 20090109
  Serious: No
  Sender: FDA-Public Use
  Company Number: US-B.I. PHARMACEUTICALS,INC./RIDGEFIELD-2008-BP-14264BP

PATIENT
  Age: 50 Year
  Sex: Female

DRUGS (1)
  1. MOBIC [Suspect]
     Indication: RHEUMATOID ARTHRITIS

REACTIONS (6)
  - CHEST DISCOMFORT [None]
  - FATIGUE [None]
  - MALAISE [None]
  - MYALGIA [None]
  - PAIN [None]
  - PYREXIA [None]
